FAERS Safety Report 8045942-3 (Version None)
Quarter: 2012Q1

REPORT INFORMATION
  Report Type: 
  Country: None (occurrence: None)
  Receive Date: 20120113
  Receipt Date: 20120104
  Transmission Date: 20120608
  Serious: Yes (Death)
  Sender: FDA-Public Use
  Company Number: US-GLAXOSMITHKLINE-B0774914A

PATIENT
  Age: 51 Year

DRUGS (4)
  1. ALEMTUZUMAB [Suspect]
     Route: 042
  2. MELPHALAN HYDROCHLORIDE [Suspect]
     Route: 042
  3. CLOFARABINE [Suspect]
     Route: 042
  4. TACROLIMUS [Concomitant]
     Route: 042

REACTIONS (2)
  - CARDIAC FAILURE CHRONIC [None]
  - RENAL FAILURE [None]
